FAERS Safety Report 15486149 (Version 2)
Quarter: 2018Q4

REPORT INFORMATION
  Report Type: Spontaneous
  Country: US (occurrence: US)
  Receive Date: 20181011
  Receipt Date: 20181110
  Transmission Date: 20190205
  Serious: No
  Sender: FDA-Public Use
  Company Number: US-BIOGEN-2018BI00641941

PATIENT
  Sex: Male

DRUGS (5)
  1. SAW PALMETTO [Concomitant]
     Active Substance: HERBALS\SAW PALMETTO
     Route: 065
  2. TECFIDERA [Suspect]
     Active Substance: DIMETHYL FUMARATE
     Indication: MULTIPLE SCLEROSIS
     Dosage: TAKE 1 CAPSULE BY MOUTH TWICE A DAY
     Route: 048
     Dates: start: 20180901
  3. MULTIVITAMIN [Concomitant]
     Active Substance: VITAMINS
     Route: 065
  4. GLATOPA [Concomitant]
     Active Substance: GLATIRAMER ACETATE
     Route: 065
  5. VITMAIN D3 [Concomitant]
     Route: 065

REACTIONS (4)
  - Nausea [Recovered/Resolved]
  - Flushing [Unknown]
  - Product dose omission [Unknown]
  - Feeling hot [Recovered/Resolved]
